FAERS Safety Report 8481472-2 (Version None)
Quarter: 2012Q3

REPORT INFORMATION
  Report Type: 
  Country: None (occurrence: None)
  Receive Date: 20120702
  Receipt Date: 20120626
  Transmission Date: 20120928
  Serious: Yes (Other)
  Sender: FDA-Public Use
  Company Number: US-PFIZER INC-2012154008

PATIENT

DRUGS (14)
  1. ATIVAN [Concomitant]
     Dosage: UNK, 1/2 HS
  2. DYAZIDE [Concomitant]
     Dosage: 37.5/25 , 1X/DAY
  3. MOBIC [Concomitant]
     Dosage: 15, 1X/DAY
  4. SYNTHROID [Concomitant]
     Dosage: 75 MG, 1X/DAY
  5. TAMOXIFEN [Concomitant]
     Dosage: 20 MG, 1X/DAY
  6. HYDROCHLOROTHIAZIDE [Concomitant]
     Dosage: 200, 2X/DAY
  7. ZANTAC [Concomitant]
     Dosage: 150, 1X/DAY
  8. LEXAPRO [Concomitant]
     Dosage: 10, 1X/DAY
  9. LYRICA [Suspect]
     Dosage: 60 MG, 3X/DAY, HS
  10. NEURONTIN [Suspect]
     Dosage: 100, 2X/DAY
  11. ZOCOR [Concomitant]
     Dosage: 40, 1X/DAY
  12. INDERAL [Concomitant]
     Dosage: 20, 2X/DAY
  13. LORTAB [Concomitant]
     Dosage: 10/325 WITH 4-6 HRS PRN
  14. KEPPRA [Concomitant]
     Dosage: 500, 2X/DAY

REACTIONS (7)
  - NOCTURIA [None]
  - HYPERTENSION [None]
  - RHEUMATOID ARTHRITIS [None]
  - FIBROMYALGIA [None]
  - LIPIDS INCREASED [None]
  - HYPOTHYROIDISM [None]
  - GASTROOESOPHAGEAL REFLUX DISEASE [None]
